FAERS Safety Report 5134179-3 (Version None)
Quarter: 2006Q4

REPORT INFORMATION
  Report Type: 
  Country: None (occurrence: None)
  Receive Date: 20061024
  Receipt Date: 20060922
  Transmission Date: 20070319
  Serious: Yes (Life-Threatening, Hospitalization)
  Sender: FDA-Public Use
  Company Number: 2006SE05115

PATIENT
  Age: 30841 Day
  Sex: Male
  Weight: 50 kg

DRUGS (9)
  1. BLOPRESS [Suspect]
     Indication: HYPERTENSION
     Route: 048
     Dates: start: 20020802, end: 20050128
  2. BLOPRESS [Suspect]
     Route: 048
     Dates: start: 20050129, end: 20050701
  3. BLOPRESS [Suspect]
     Route: 048
     Dates: start: 20050701, end: 20060901
  4. HERBESSER R [Concomitant]
     Route: 048
     Dates: end: 20060901
  5. ADALAT [Concomitant]
     Route: 048
     Dates: end: 20060901
  6. OMEPRAZOLE [Concomitant]
     Route: 048
     Dates: end: 20060901
  7. GASMOTIN [Concomitant]
     Route: 048
     Dates: end: 20060901
  8. BERIZYM [Concomitant]
     Route: 048
     Dates: end: 20060901
  9. CHOUTOUSAN [Concomitant]
     Route: 048
     Dates: end: 20060901

REACTIONS (5)
  - ATRIOVENTRICULAR BLOCK THIRD DEGREE [None]
  - BLOOD POTASSIUM INCREASED [None]
  - CARDIAC ARREST [None]
  - HYPOTENSION [None]
  - PNEUMONIA [None]
